FAERS Safety Report 6532491-4 (Version None)
Quarter: 2010Q1

REPORT INFORMATION
  Report Type: 
  Country: None (occurrence: None)
  Receive Date: 20100111
  Receipt Date: 20091230
  Transmission Date: 20100710
  Serious: Yes (Hospitalization)
  Sender: FDA-Public Use
  Company Number: US-BIOGENIDEC-2009BI038370

PATIENT
  Age: 72 Year
  Sex: Female

DRUGS (11)
  1. AVONEX [Suspect]
     Indication: MULTIPLE SCLEROSIS
     Route: 030
     Dates: start: 20090904, end: 20090904
  2. ALBUTEROL [Concomitant]
  3. ASPIRIN [Concomitant]
  4. VITAMIN D [Concomitant]
  5. BROVANA [Concomitant]
  6. SPIRIVA [Concomitant]
  7. LASIX [Concomitant]
  8. XANAX [Concomitant]
  9. IBUPROFEN [Concomitant]
  10. VENTOLIN [Concomitant]
  11. SENOKOT [Concomitant]

REACTIONS (6)
  - CHRONIC OBSTRUCTIVE PULMONARY DISEASE [None]
  - DISCOMFORT [None]
  - GAIT DISTURBANCE [None]
  - GENERALISED ANXIETY DISORDER [None]
  - PAIN [None]
  - TREMOR [None]
